FAERS Safety Report 6147219-X (Version None)
Quarter: 2009Q2

REPORT INFORMATION
  Report Type: 
  Country: None (occurrence: None)
  Receive Date: 20090407
  Receipt Date: 20090402
  Transmission Date: 20091009
  Serious: No
  Sender: FDA-Public Use
  Company Number: US-B.I. PHARMACEUTICALS,INC./RIDGEFIELD-2009-BP-04153BP

PATIENT
  Age: 70 Year
  Sex: Male

DRUGS (5)
  1. FLOMAX [Suspect]
     Indication: DYSURIA
     Dosage: .8MG
     Route: 048
  2. LISINOPRIL [Concomitant]
     Indication: HYPERTENSION
  3. METOPROLOL [Concomitant]
     Indication: HYPERTENSION
  4. SIMVASTATIN [Concomitant]
     Indication: BLOOD CHOLESTEROL INCREASED
  5. ASPIRIN [Concomitant]
     Indication: PROPHYLAXIS

REACTIONS (1)
  - EJACULATION FAILURE [None]
